FAERS Safety Report 4541976-1 (Version None)
Quarter: 2004Q4

REPORT INFORMATION
  Report Type: 
  Country: None (occurrence: None)
  Receive Date: 20041227
  Receipt Date: 20041213
  Transmission Date: 20050328
  Serious: Yes (Hospitalization)
  Sender: FDA-Public Use
  Company Number: 2004UW25718

PATIENT
  Age: 85 Year
  Sex: Female

DRUGS (7)
  1. CRESTOR [Suspect]
     Dosage: 10 MG QD PO
     Route: 048
     Dates: start: 20031002, end: 20040801
  2. ASPIRIN [Suspect]
     Dosage: 81 MG QD
  3. ENALAPRIL [Suspect]
     Dosage: 5 MG QD
  4. METOPROLOL [Suspect]
     Dosage: 25 MG BID
  5. PRILOSEC [Suspect]
     Dosage: 20 MG QD
  6. SYNTHROID [Concomitant]
  7. AVELOX [Concomitant]

REACTIONS (22)
  - ALANINE AMINOTRANSFERASE INCREASED [None]
  - ASTHENIA [None]
  - BLOOD ALBUMIN DECREASED [None]
  - BLOOD ALKALINE PHOSPHATASE INCREASED [None]
  - BLOOD PRESSURE SYSTOLIC INCREASED [None]
  - BLOOD SODIUM DECREASED [None]
  - DEHYDRATION [None]
  - GLUCOSE URINE PRESENT [None]
  - HAEMODIALYSIS [None]
  - LEUKOCYTOSIS [None]
  - MARKEDLY REDUCED DIETARY INTAKE [None]
  - MUCOSAL DRYNESS [None]
  - MYALGIA [None]
  - NAUSEA [None]
  - NEPHRITIS INTERSTITIAL [None]
  - PAIN [None]
  - PYREXIA [None]
  - RENAL FAILURE ACUTE [None]
  - RENAL FAILURE CHRONIC [None]
  - RENAL TUBULAR NECROSIS [None]
  - RHEUMATOID FACTOR POSITIVE [None]
  - SINUSITIS [None]
